FAERS Safety Report 15402622 (Version 16)
Quarter: 2020Q3

REPORT INFORMATION
  Report Type: Report from Study
  Country: CO (occurrence: CO)
  Receive Date: 20180919
  Receipt Date: 20200810
  Transmission Date: 20201102
  Serious: Yes (Death, Hospitalization, Other)
  Sender: FDA-Public Use
  Company Number: CO-ACTELION-A-CH2018-179017

PATIENT
  Age: 63 Year
  Sex: Female
  Weight: 65 kg

DRUGS (12)
  1. OPSUMIT [Suspect]
     Active Substance: MACITENTAN
     Indication: PULMONARY ARTERIAL HYPERTENSION
     Dosage: 10 MG, QD
     Route: 048
     Dates: start: 20181024, end: 20190120
  2. OPSUMIT [Suspect]
     Active Substance: MACITENTAN
     Dosage: 10 MG, OD
     Route: 048
     Dates: start: 20190309, end: 20190407
  3. OPSUMIT [Suspect]
     Active Substance: MACITENTAN
     Dosage: 10 MG, OD
     Route: 048
     Dates: start: 20190412, end: 201908
  4. CARVEDILOL. [Concomitant]
     Active Substance: CARVEDILOL
  5. OPSUMIT [Suspect]
     Active Substance: MACITENTAN
     Dosage: 10 MG, QD
     Route: 048
     Dates: start: 20190925, end: 201912
  6. OPSUMIT [Suspect]
     Active Substance: MACITENTAN
     Dosage: 10 MG, QD
     Route: 048
     Dates: start: 20191230
  7. METOPROLOL. [Concomitant]
     Active Substance: METOPROLOL
  8. OPSUMIT [Suspect]
     Active Substance: MACITENTAN
     Dosage: 10 MG, QD
     Route: 048
     Dates: start: 20190816, end: 201909
  9. RIOCIGUAT. [Suspect]
     Active Substance: RIOCIGUAT
     Indication: PULMONARY ARTERIAL HYPERTENSION
     Dosage: UNK
     Route: 065
     Dates: start: 20180507
  10. LEVETIRACETAM. [Suspect]
     Active Substance: LEVETIRACETAM
     Indication: EPILEPSY
     Route: 065
  11. TRACLEER [Suspect]
     Active Substance: BOSENTAN
     Indication: PULMONARY ARTERIAL HYPERTENSION
     Dosage: 62.5 MG, BID
     Route: 048
     Dates: start: 20160328
  12. HIDROXICLOROQUINA [Suspect]
     Active Substance: HYDROXYCHLOROQUINE
     Indication: SYSTEMIC LUPUS ERYTHEMATOSUS
     Route: 065

REACTIONS (65)
  - Fluid retention [Recovering/Resolving]
  - Dizziness [Recovering/Resolving]
  - Head discomfort [Not Recovered/Not Resolved]
  - Fall [Unknown]
  - Fibromyalgia [Unknown]
  - Inflammation [Unknown]
  - Arrhythmia [Not Recovered/Not Resolved]
  - Abdominal distension [Not Recovered/Not Resolved]
  - Coagulation time prolonged [Recovering/Resolving]
  - Pulmonary artery occlusion [Recovering/Resolving]
  - Acute oesophageal mucosal lesion [Recovering/Resolving]
  - Coagulopathy [Recovering/Resolving]
  - Discomfort [Not Recovered/Not Resolved]
  - Eye disorder [Not Recovered/Not Resolved]
  - Inflammation of wound [Unknown]
  - Nervous system disorder [Recovering/Resolving]
  - Chest discomfort [Recovering/Resolving]
  - Chest pain [Not Recovered/Not Resolved]
  - Product availability issue [Unknown]
  - Asthenopia [Not Recovered/Not Resolved]
  - Headache [Recovering/Resolving]
  - Mitral valve calcification [Not Recovered/Not Resolved]
  - Mitral valve disease [Not Recovered/Not Resolved]
  - Malaise [Not Recovered/Not Resolved]
  - Intestinal obstruction [Unknown]
  - Swelling face [Not Recovered/Not Resolved]
  - Ear disorder [Not Recovered/Not Resolved]
  - Syncope [Not Recovered/Not Resolved]
  - Walking aid user [Unknown]
  - Blood creatinine increased [Unknown]
  - Fatigue [Not Recovered/Not Resolved]
  - Bronchitis [Recovering/Resolving]
  - General physical health deterioration [Not Recovered/Not Resolved]
  - Tremor [Not Recovered/Not Resolved]
  - Walking disability [Recovering/Resolving]
  - Cardio-respiratory arrest [Fatal]
  - Hypotension [Not Recovered/Not Resolved]
  - Dyspnoea [Recovering/Resolving]
  - Cardiac failure [Not Recovered/Not Resolved]
  - Angina unstable [Unknown]
  - Hyponatraemia [Not Recovered/Not Resolved]
  - Hysterectomy [Unknown]
  - Chronic kidney disease [Unknown]
  - Anxiety [Recovering/Resolving]
  - Joint swelling [Not Recovered/Not Resolved]
  - Memory impairment [Not Recovered/Not Resolved]
  - Diarrhoea [Not Recovered/Not Resolved]
  - Abdominal pain upper [Not Recovered/Not Resolved]
  - Peripheral swelling [Not Recovered/Not Resolved]
  - Gait disturbance [Not Recovered/Not Resolved]
  - Choking [Not Recovered/Not Resolved]
  - Musculoskeletal pain [Not Recovered/Not Resolved]
  - Constipation [Not Recovered/Not Resolved]
  - Feeling abnormal [Recovering/Resolving]
  - Reflux gastritis [Not Recovered/Not Resolved]
  - Pain in extremity [Not Recovered/Not Resolved]
  - Loss of control of legs [Not Recovered/Not Resolved]
  - Swelling [Not Recovered/Not Resolved]
  - Heart disease congenital [Recovering/Resolving]
  - Renal disorder [Unknown]
  - Haematemesis [Recovering/Resolving]
  - Flatulence [Not Recovered/Not Resolved]
  - Swelling of eyelid [Not Recovered/Not Resolved]
  - Vasodilatation [Not Recovered/Not Resolved]
  - Wheelchair user [Recovering/Resolving]

NARRATIVE: CASE EVENT DATE: 201603
